FAERS Safety Report 4708944-8 (Version None)
Quarter: 2005Q3

REPORT INFORMATION
  Report Type: 
  Country: None (occurrence: None)
  Receive Date: 20050707
  Receipt Date: 20050620
  Transmission Date: 20060218
  Serious: Yes (Disabling, Other)
  Sender: FDA-Public Use
  Company Number: 2005075005

PATIENT
  Sex: Female
  Weight: 68.0396 kg

DRUGS (5)
  1. XANAX [Suspect]
     Indication: ANXIETY
     Dosage: 1.5 MG (0.5 MG, 3 IN 1 D), ORAL
     Route: 048
     Dates: end: 20020719
  2. NEURONTIN [Suspect]
     Indication: ANXIETY
     Dosage: 500 MG (100 MG, 3 IN 1 D), ORAL
     Route: 048
  3. FIORICET [Suspect]
     Indication: MIGRAINE
  4. AVAPRO [Concomitant]
  5. PREVACID (LANSOPRAZOLE0 [Concomitant]

REACTIONS (19)
  - AMNESIA [None]
  - BACK PAIN [None]
  - BLOOD ALKALINE PHOSPHATASE INCREASED [None]
  - BLOOD CHOLESTEROL INCREASED [None]
  - CONFUSIONAL STATE [None]
  - DIFFICULTY IN WALKING [None]
  - DRUG ABUSER [None]
  - EXERCISE CAPACITY DECREASED [None]
  - EYE DISORDER [None]
  - FLUID RETENTION [None]
  - FOOT FRACTURE [None]
  - HIGH DENSITY LIPOPROTEIN DECREASED [None]
  - INTERVERTEBRAL DISC DISORDER [None]
  - MEMORY IMPAIRMENT [None]
  - OEDEMA PERIPHERAL [None]
  - PAIN IN EXTREMITY [None]
  - VITREOUS DETACHMENT [None]
  - WEIGHT INCREASED [None]
  - WEIGHT LOSS POOR [None]
